FAERS Safety Report 8418255-5 (Version None)
Quarter: 2012Q2

REPORT INFORMATION
  Report Type: 
  Country: None (occurrence: None)
  Receive Date: 20120607
  Receipt Date: 20120531
  Transmission Date: 20120825
  Serious: Yes (Hospitalization)
  Sender: FDA-Public Use
  Company Number: US-CELGENEUS-163-21880-12042114

PATIENT
  Sex: Male
  Weight: 64.7 kg

DRUGS (17)
  1. REVLIMID [Suspect]
     Dosage: 10 MILLIGRAM
     Route: 048
     Dates: start: 20120321, end: 20120325
  2. PRAVASTATIN [Concomitant]
     Dosage: 20 MILLIGRAM
     Route: 048
  3. BACTRIM DS [Concomitant]
     Route: 065
  4. ROPINIROLE [Concomitant]
     Indication: RESTLESS LEGS SYNDROME
     Dosage: .5 MILLIGRAM
     Route: 048
  5. PROSCAR [Concomitant]
     Dosage: 5 MILLIGRAM
     Route: 048
  6. PLAVIX [Concomitant]
     Dosage: 75 MILLIGRAM
     Route: 048
  7. LOVAZA [Concomitant]
     Indication: VITAMIN SUPPLEMENTATION
     Dosage: 1000 MILLIGRAM
     Route: 048
  8. OFATUMUMAB [Suspect]
     Dosage: 1000 MILLIGRAM
     Route: 041
     Dates: start: 20120223, end: 20120320
  9. SYNTHROID [Concomitant]
     Dosage: 100 MICROGRAM
     Route: 048
  10. CHOLECALCIFEROL [Concomitant]
     Dosage: 1000 UNITS
     Route: 048
  11. COENZYME Q10 [Concomitant]
     Indication: VITAMIN SUPPLEMENTATION
     Route: 065
  12. REVLIMID [Suspect]
     Dosage: 10 MILLIGRAM
     Route: 048
     Dates: start: 20120224, end: 20120227
  13. CIPROFLOXACIN [Concomitant]
     Dosage: 1
     Route: 041
     Dates: start: 20120325, end: 20120327
  14. ATENOLOL [Concomitant]
     Dosage: 25 MILLIGRAM
     Route: 048
  15. ASPIRIN [Concomitant]
     Dosage: 81 MILLIGRAM
     Route: 048
  16. PROTONIX [Concomitant]
     Dosage: 20 MILLIGRAM
     Route: 048
  17. ACYCLOVIR [Concomitant]
     Indication: PROPHYLAXIS
     Route: 065

REACTIONS (4)
  - METABOLIC ENCEPHALOPATHY [None]
  - ASTHENIA [None]
  - RENAL FAILURE ACUTE [None]
  - FATIGUE [None]
